FAERS Safety Report 13379843 (Version 2)
Quarter: 2017Q2

REPORT INFORMATION
  Report Type: Spontaneous
  Country: IT (occurrence: IT)
  Receive Date: 20170328
  Receipt Date: 20170404
  Transmission Date: 20170830
  Serious: Yes (Other)
  Sender: FDA-Public Use
  Company Number: IT-ELI_LILLY_AND_COMPANY-IT201703006655

PATIENT
  Age: 88 Year
  Sex: Male

DRUGS (11)
  1. ZYPREXA [Suspect]
     Active Substance: OLANZAPINE
     Indication: SEDATIVE THERAPY
     Dosage: 5 MG, QD
     Route: 048
     Dates: start: 20150101, end: 20160404
  2. BISOPROLOL FUMARATE. [Concomitant]
     Active Substance: BISOPROLOL FUMARATE
     Route: 048
  3. DUROGESIC [Suspect]
     Active Substance: FENTANYL
     Indication: ANALGESIC THERAPY
     Dosage: 25 MG, QD
     Route: 062
     Dates: start: 20150101, end: 20160404
  4. TRITTICO [Suspect]
     Active Substance: TRAZODONE HYDROCHLORIDE
     Indication: SEDATIVE THERAPY
     Dosage: 75 MG, QD
     Route: 048
     Dates: start: 20150101, end: 20160404
  5. LASIX [Concomitant]
     Active Substance: FUROSEMIDE
  6. LEVOPRAID                          /01142501/ [Concomitant]
  7. CARDIOASPIRIN [Concomitant]
     Active Substance: ASPIRIN
  8. CLEXANE [Concomitant]
     Active Substance: ENOXAPARIN SODIUM
  9. LUVION                             /00839101/ [Concomitant]
     Active Substance: CANRENONE
  10. PARACETAMOL [Concomitant]
     Active Substance: ACETAMINOPHEN
  11. ALIFLUS [Concomitant]
     Active Substance: FLUTICASONE PROPIONATE\SALMETEROL XINAFOATE

REACTIONS (5)
  - Pallor [Unknown]
  - Cognitive disorder [Unknown]
  - Gait disturbance [Unknown]
  - Disorientation [Unknown]
  - Sopor [Unknown]

NARRATIVE: CASE EVENT DATE: 20160404
